FAERS Safety Report 14208580 (Version 1)
Quarter: 2017Q4

REPORT INFORMATION
  Report Type: Spontaneous
  Country: US (occurrence: US)
  Receive Date: 20171121
  Receipt Date: 20171121
  Transmission Date: 20180321
  Serious: Yes (Other)
  Sender: FDA-Public Use
  Company Number: US-PFIZER INC-2015386029

PATIENT
  Age: 79 Year
  Sex: Female
  Weight: 63 kg

DRUGS (5)
  1. LYRICA [Suspect]
     Active Substance: PREGABALIN
     Indication: POST HERPETIC NEURALGIA
     Dosage: 225 MG, DAILY, 150MG AT BEDTIME, AND 75MG IN THE MORNING
     Route: 048
  2. XANAX [Concomitant]
     Active Substance: ALPRAZOLAM
     Indication: ANXIETY
     Dosage: 0.5MG TABLET, ONCE OR TWICE A DAY, WHEN NEEDED
     Route: 048
  3. TYLENOL [Concomitant]
     Active Substance: ACETAMINOPHEN
     Dosage: 3 DF, 2X/DAY
     Route: 048
  4. TYLENOL [Concomitant]
     Active Substance: ACETAMINOPHEN
     Indication: POST HERPETIC NEURALGIA
     Dosage: 3 DF, 1X/DAY
     Route: 048
  5. ATENOLOL. [Concomitant]
     Active Substance: ATENOLOL
     Indication: ARRHYTHMIA
     Dosage: 100 MG, 1X/DAY
     Route: 048

REACTIONS (2)
  - Drug dose omission [Unknown]
  - Breast cancer [Unknown]
